FAERS Safety Report 14731768 (Version 3)
Quarter: 2018Q2

REPORT INFORMATION
  Report Type: Spontaneous
  Country: ES (occurrence: ES)
  Receive Date: 20180407
  Receipt Date: 20180617
  Transmission Date: 20180711
  Serious: Yes (Hospitalization)
  Sender: FDA-Public Use
  Company Number: PHHY2018ES061255

PATIENT
  Sex: Male

DRUGS (1)
  1. COSENTYX [Suspect]
     Active Substance: SECUKINUMAB
     Indication: PSORIASIS
     Dosage: 300 MG, UNK
     Route: 065
     Dates: start: 201710, end: 201711

REACTIONS (9)
  - Pulmonary sepsis [Recovered/Resolved]
  - Rhinorrhoea [Unknown]
  - Cough [Unknown]
  - Diarrhoea [Unknown]
  - Back pain [Unknown]
  - Streptococcus test positive [Unknown]
  - Pain [Unknown]
  - Secretion discharge [Unknown]
  - Vomiting [Unknown]

NARRATIVE: CASE EVENT DATE: 20171126
